FAERS Safety Report 24636216 (Version 1)
Quarter: 2024Q4

REPORT INFORMATION
  Report Type: Spontaneous
  Country: IT (occurrence: IT)
  Receive Date: 20241119
  Receipt Date: 20241119
  Transmission Date: 20250115
  Serious: Yes (Hospitalization)
  Sender: AUROBINDO
  Company Number: IT-WATSON-2012-17392

PATIENT
  Age: 64 Year
  Sex: Male

DRUGS (1)
  1. LEVOFLOXACIN [Suspect]
     Active Substance: LEVOFLOXACIN
     Indication: Pyrexia
     Dosage: UNK
     Route: 065

REACTIONS (10)
  - Hepatic necrosis [Not Recovered/Not Resolved]
  - Hepatic steatosis [Recovering/Resolving]
  - Liver injury [Recovered/Resolved]
  - Hepatic cytolysis [Recovered/Resolved]
  - Obesity [Recovered/Resolved]
  - Blood acid phosphatase increased [Recovered/Resolved]
  - Fibrosis [Recovered/Resolved]
  - Blood alkaline phosphatase increased [Recovered/Resolved]
  - Transaminases increased [Recovered/Resolved]
  - Gamma-glutamyltransferase increased [Recovered/Resolved]
